FAERS Safety Report 13956849 (Version 2)
Quarter: 2017Q3

REPORT INFORMATION
  Report Type: Spontaneous
  Country: BR (occurrence: BR)
  Receive Date: 20170911
  Receipt Date: 20170918
  Transmission Date: 20171128
  Serious: Yes (Hospitalization)
  Sender: FDA-Public Use
  Company Number: BR-GUERBET-BR-20170376

PATIENT
  Age: 35 Year
  Sex: Female
  Weight: 75 kg

DRUGS (1)
  1. DOTAREM [Suspect]
     Active Substance: GADOTERATE MEGLUMINE
     Indication: NUCLEAR MAGNETIC RESONANCE IMAGING
     Route: 042
     Dates: start: 20170724, end: 20170724

REACTIONS (7)
  - Pruritus [Recovered/Resolved]
  - Laryngeal discomfort [Recovered/Resolved]
  - Cough [Recovered/Resolved]
  - Macule [Recovered/Resolved]
  - Urticaria [Recovered/Resolved]
  - Dyspnoea [Recovered/Resolved]
  - Headache [Recovered/Resolved]

NARRATIVE: CASE EVENT DATE: 20170724
